FAERS Safety Report 5689858-6 (Version None)
Quarter: 2008Q1

REPORT INFORMATION
  Report Type: 
  Country: None (occurrence: None)
  Receive Date: 20080331
  Receipt Date: 20080331
  Transmission Date: 20080703
  Serious: Yes (Other)
  Sender: FDA-Public Use
  Company Number: None

PATIENT
  Age: 30 Year
  Sex: Female
  Weight: 54.4316 kg

DRUGS (1)
  1. CHANTIX [Suspect]
     Indication: SMOKING CESSATION THERAPY
     Dosage: 1 MG TWICE A DAY
     Dates: start: 20080128, end: 20080326

REACTIONS (7)
  - ABNORMAL DREAMS [None]
  - ANHEDONIA [None]
  - CRYING [None]
  - DEPRESSION [None]
  - HALLUCINATION, VISUAL [None]
  - MOOD SWINGS [None]
  - SUICIDAL IDEATION [None]
